FAERS Safety Report 9768927 (Version 1)
Quarter: 2013Q4

REPORT INFORMATION
  Report Type: Spontaneous
  Country: JP (occurrence: None)
  Receive Date: 20131120
  Receipt Date: 20131120
  Transmission Date: 20140711
  Serious: Yes (Other)
  Sender: FDA-Public Use
  Company Number: 2010022095

PATIENT
  Age: 69 Year
  Sex: Female

DRUGS (21)
  1. BONALON /01220301/ (ALENDRONIC ACID) [Concomitant]
  2. ISCOTIN /00030201/ (ISONIAZID) [Concomitant]
  3. WARFARIN [Suspect]
  4. POTASSIUM-MAGNESIUM-L-ASPARAGINATE (TROMCARDIN /00196901/) [Concomitant]
  5. PAXIL (PAROXETINE HYDROCHLORIDE) [Concomitant]
  6. ALBUMINAR-5% (ALBUMIN (HUMAN) 5% SOLUTION) [Suspect]
     Indication: PLASMAPHERESIS
     Route: 042
     Dates: start: 20100124, end: 20100126
  7. ALBUMINAR-5% (ALBUMIN (HUMAN) 5% SOLUTION) [Suspect]
     Indication: PEMPHIGOID
     Route: 042
     Dates: start: 20100124, end: 20100126
  8. SEKIJUJI ALBUMIN 20% (ALBUMIN HUMAN) [Suspect]
     Indication: PLASMAPHERESIS
     Route: 042
     Dates: start: 20100126, end: 20100126
  9. SEKIJUJI ALBUMIN 20% (ALBUMIN HUMAN) [Suspect]
     Indication: PEMPHIGOID
     Route: 042
     Dates: start: 20100126, end: 20100126
  10. RED BLOOD CELLS, CONCENTRATED (RED BLOOD CELLS , CONCENTRATED) [Concomitant]
  11. PLASMA, FRESH FROZEN [Concomitant]
  12. NAOTAMIN (NAFOMOSTAT MESILATE) [Concomitant]
  13. LOWHEPA (HEPARIN SODIUM) [Concomitant]
  14. PREDONINE /00016201/ (PREDNISOLONE) [Concomitant]
  15. THYRADIN-S (LEVOTHYROXINE SODIUM) [Concomitant]
  16. NICOTINAMIDE (NICOTINAMIDE) [Concomitant]
  17. VIBRAMYCIN /00055701/ (DOXYCYCLINE) [Concomitant]
  18. BAKTAR (BACTRIM /00086101/) [Concomitant]
  19. ZYRTEC /00884302/ (CETRIZINE HYDROCHLORIDE) [Concomitant]
  20. MYSLEE (ZOLPIDEM TARTRATE) [Concomitant]
  21. GASTER D (FAMOTIDINE) [Concomitant]

REACTIONS (5)
  - Blood pressure decreased [None]
  - Feeling abnormal [None]
  - Pyrexia [None]
  - Chills [None]
  - Nausea [None]
